FAERS Safety Report 14879774 (Version 1)
Quarter: 2018Q2

REPORT INFORMATION
  Report Type: Spontaneous
  Country: US (occurrence: US)
  Receive Date: 20180424
  Receipt Date: 20180424
  Transmission Date: 20180711
  Serious: Yes (Other)
  Sender: FDA-Public Use
  Company Number: None

PATIENT
  Age: 59 Year
  Sex: Female
  Weight: 60.3 kg

DRUGS (17)
  1. ZOLPIDEM 10 MG/AMBIEM [Suspect]
     Active Substance: ZOLPIDEM\ZOLPIDEM TARTRATE
     Indication: INSOMNIA
     Dosage: ?          QUANTITY:1 DF DOSAGE FORM;?
     Route: 048
     Dates: start: 20180118, end: 20180418
  2. PRESERVISION [Concomitant]
     Active Substance: MINERALS\VITAMINS
  3. HEATING PAD [Concomitant]
  4. ONE A DAY MULTI VITAMINS [Concomitant]
  5. PROAIR INHALER [Concomitant]
     Active Substance: ALBUTEROL SULFATE
  6. ALBERTROL NEBULIZER [Concomitant]
  7. OXYCODONE/FENYTAL PATCH [Concomitant]
  8. RANITIDINE. [Concomitant]
     Active Substance: RANITIDINE
  9. NEBULIZER MACHINE [Concomitant]
  10. ALPRAZOLAM. [Concomitant]
     Active Substance: ALPRAZOLAM
  11. SINGULAIR [Concomitant]
     Active Substance: MONTELUKAST SODIUM
  12. TUMS [Concomitant]
     Active Substance: CALCIUM CARBONATE
  13. GENERALAC [Concomitant]
  14. FLEXERIL [Concomitant]
     Active Substance: CYCLOBENZAPRINE HYDROCHLORIDE
  15. TENS UNIT [Concomitant]
  16. ICE PACK [Concomitant]
  17. IBUPROFEN. [Concomitant]
     Active Substance: IBUPROFEN

REACTIONS (4)
  - Memory impairment [None]
  - Confusional state [None]
  - Loss of consciousness [None]
  - Speech disorder [None]

NARRATIVE: CASE EVENT DATE: 20180318
